FAERS Safety Report 4539356-8 (Version None)
Quarter: 2004Q4

REPORT INFORMATION
  Report Type: 
  Country: None (occurrence: None)
  Receive Date: 20041222
  Receipt Date: 20041209
  Transmission Date: 20050328
  Serious: Yes (Death, Other)
  Sender: FDA-Public Use
  Company Number: 2004113965

PATIENT
  Age: 39 Year
  Sex: Female

DRUGS (3)
  1. GENETROPIN (SOMATROPIN) [Suspect]
     Indication: BLOOD GROWTH HORMONE DECREASED
     Dosage: 0.8 MG (0.8 MG, DAILY)
     Dates: start: 20020226, end: 20041006
  2. ELTROXIN (LEVOTHYROXINE SODIUM) [Concomitant]
  3. MERCILON (DESOGESTREL, ETHINYLESTRADIOL) [Concomitant]

REACTIONS (1)
  - CORONARY ARTERY THROMBOSIS [None]
